FAERS Safety Report 4860386-0 (Version None)
Quarter: 2005Q4

REPORT INFORMATION
  Report Type: 
  Country: None (occurrence: None)
  Receive Date: 20051219
  Receipt Date: 20051209
  Transmission Date: 20060501
  Serious: Yes (Other)
  Sender: FDA-Public Use
  Company Number: CA-BRISTOL-MYERS SQUIBB COMPANY-13218482

PATIENT
  Age: 85 Year
  Sex: Female

DRUGS (10)
  1. TEQUIN [Suspect]
     Route: 048
  2. ASPIRIN [Concomitant]
     Route: 048
  3. CARDIZEM [Concomitant]
  4. COLACE [Concomitant]
  5. DULCOLAX [Concomitant]
  6. LANOXIN [Concomitant]
  7. MULTIVITAMIN [Concomitant]
  8. OS-CAL 500 [Concomitant]
  9. TEGRETOL [Concomitant]
  10. VITAMIN D [Concomitant]

REACTIONS (1)
  - HYPERGLYCAEMIA [None]
